FAERS Safety Report 16152022 (Version 1)
Quarter: 2019Q2

REPORT INFORMATION
  Report Type: Spontaneous
  Country: FR (occurrence: FR)
  Receive Date: 20190403
  Receipt Date: 20190403
  Transmission Date: 20190711
  Serious: Yes (Hospitalization)
  Sender: FDA-Public Use
  Company Number: FR-ACCORD-117512

PATIENT
  Age: 84 Year
  Sex: Female

DRUGS (10)
  1. ZANIDIP [Concomitant]
     Active Substance: LERCANIDIPINE HYDROCHLORIDE
     Dosage: STRENGTH: 10 MG, DIVISIBLE COATED TABLET
  2. DIFFU K [Concomitant]
     Active Substance: POTASSIUM CHLORIDE
  3. SEROPLEX [Concomitant]
     Active Substance: ESCITALOPRAM OXALATE
     Dosage: STRENGTH: 5 MG,COATED TABLET
  4. FUROSEMIDE. [Suspect]
     Active Substance: FUROSEMIDE
     Indication: HYPERTENSION
     Route: 048
  5. ELIQUIS [Concomitant]
     Active Substance: APIXABAN
     Dosage: STRENGTH: 2,5 MG, COATED TABLET
  6. NOVONORM [Concomitant]
     Active Substance: REPAGLINIDE
     Dosage: STRENGTH:0,5 MG
  7. OROCAL D3 [Concomitant]
     Active Substance: CALCIUM CARBONATE\CHOLECALCIFEROL
     Dosage: SUCKING TABLET
  8. FOSAMAX [Concomitant]
     Active Substance: ALENDRONATE SODIUM
     Dosage: STRENGTH: 70 MG
  9. CELIPROLOL [Suspect]
     Active Substance: CELIPROLOL
     Indication: HYPERTENSION
     Route: 048
     Dates: start: 2018, end: 20190116
  10. BROMAZEPAM [Concomitant]
     Active Substance: BROMAZEPAM

REACTIONS (2)
  - Bradycardia [Recovering/Resolving]
  - Hypokalaemia [Recovering/Resolving]

NARRATIVE: CASE EVENT DATE: 20190115
